FAERS Safety Report 7463336-6 (Version None)
Quarter: 2011Q2

REPORT INFORMATION
  Report Type: 
  Country: None (occurrence: None)
  Receive Date: 20110428
  Receipt Date: 20110413
  Transmission Date: 20111010
  Serious: Yes (Other)
  Sender: FDA-Public Use
  Company Number: 2011SP017360

PATIENT
  Age: 12 Year
  Sex: Female

DRUGS (3)
  1. NASONEX [Suspect]
     Indication: PRODUCT USED FOR UNKNOWN INDICATION
     Dosage: 200 MCG;NAS
     Route: 045
     Dates: start: 20110329
  2. ZESULAN [Concomitant]
  3. EBASTINE [Concomitant]

REACTIONS (1)
  - PROTEIN URINE PRESENT [None]
